FAERS Safety Report 6215271-9 (Version None)
Quarter: 2009Q2

REPORT INFORMATION
  Report Type: 
  Country: None (occurrence: None)
  Receive Date: 20090604
  Receipt Date: 20090529
  Transmission Date: 20091009
  Serious: Yes (Other)
  Sender: FDA-Public Use
  Company Number: EG-ABBOTT-09P-048-0576777-00

PATIENT
  Age: 26 Year
  Sex: Male

DRUGS (4)
  1. DEPAKENE [Suspect]
     Indication: MANIA
     Route: 048
     Dates: start: 20090317
  2. DEPAKENE [Suspect]
     Route: 048
     Dates: end: 20090323
  3. HALOPERIDOL [Concomitant]
     Indication: MANIA
     Route: 048
     Dates: start: 20090317
  4. AKINETON [Concomitant]
     Indication: MANIA
     Route: 048
     Dates: start: 20090317

REACTIONS (5)
  - DISORIENTATION [None]
  - DRUG LEVEL ABOVE THERAPEUTIC [None]
  - DYSARTHRIA [None]
  - HYPERAMMONAEMIA [None]
  - SOMNOLENCE [None]
